FAERS Safety Report 19126116 (Version 1)
Quarter: 2021Q2

REPORT INFORMATION
  Report Type: Report from Study
  Country: US (occurrence: US)
  Receive Date: 20210412
  Receipt Date: 20210412
  Transmission Date: 20210717
  Serious: No
  Sender: FDA-Public Use
  Company Number: US-SUNOVION-2021SUN001146

PATIENT
  Sex: Female

DRUGS (1)
  1. KYNMOBI [Suspect]
     Active Substance: APOMORPHINE HYDROCHLORIDE
     Dosage: 10 MG
     Route: 060

REACTIONS (9)
  - Cold sweat [Unknown]
  - Pallor [Unknown]
  - Hypotension [Unknown]
  - Feeling hot [Unknown]
  - Headache [Recovered/Resolved]
  - Fatigue [Unknown]
  - Tremor [Recovered/Resolved]
  - Hot flush [Unknown]
  - Presyncope [Unknown]

NARRATIVE: CASE EVENT DATE: 20210324
